FAERS Safety Report 5672962-6 (Version None)
Quarter: 2008Q1

REPORT INFORMATION
  Report Type: 
  Country: None (occurrence: None)
  Receive Date: 20080319
  Receipt Date: 20080318
  Transmission Date: 20080703
  Serious: Yes (Hospitalization)
  Sender: FDA-Public Use
  Company Number: B0508358A

PATIENT
  Age: 36 Year
  Sex: Male

DRUGS (4)
  1. VALACYCLOVIR [Suspect]
     Indication: HERPES VIRUS INFECTION
     Dosage: 500MG TWICE PER DAY
     Route: 048
  2. ACYCLOVIR [Suspect]
     Indication: ENCEPHALITIS HERPES
     Dosage: 500MG PER DAY
     Route: 042
  3. CYCLOSPORINE [Concomitant]
     Route: 065
  4. PREDNISOLONE [Concomitant]
     Route: 065

REACTIONS (10)
  - ANXIETY [None]
  - CONFUSIONAL STATE [None]
  - COTARD'S SYNDROME [None]
  - DEHYDRATION [None]
  - DEPRESSION [None]
  - DIARRHOEA [None]
  - DYSARTHRIA [None]
  - FATIGUE [None]
  - FEAR [None]
  - SCREAMING [None]
